FAERS Safety Report 8522123-8 (Version None)
Quarter: 2012Q3

REPORT INFORMATION
  Report Type: 
  Country: None (occurrence: None)
  Receive Date: 20120709
  Receipt Date: 20120628
  Transmission Date: 20120928
  Serious: Yes (Life-Threatening)
  Sender: FDA-Public Use
  Company Number: 2012P1047637

PATIENT
  Age: 56 Year
  Sex: Female

DRUGS (1)
  1. TWINJECT 0.3 [Suspect]
     Indication: HYPERSENSITIVITY
     Dosage: 0.3 MG;PRN;IM
     Route: 030
     Dates: start: 20120625, end: 20120625

REACTIONS (1)
  - DEVICE FAILURE [None]
